FAERS Safety Report 5277781-0 (Version None)
Quarter: 2007Q1

REPORT INFORMATION
  Report Type: 
  Country: None (occurrence: None)
  Receive Date: 20070327
  Receipt Date: 20070315
  Transmission Date: 20070707
  Serious: Yes (Death)
  Sender: FDA-Public Use
  Company Number: US-PFIZER INC-2006076863

PATIENT
  Sex: Female

DRUGS (8)
  1. NEURONTIN [Suspect]
     Indication: PAIN
  2. DIPHENHYDRAMINE HCL [Suspect]
  3. DOXEPIN HCL [Suspect]
  4. METOCLOPRAMIDE [Suspect]
  5. MEPROBAMATE [Suspect]
  6. MIRTAZAPINE [Suspect]
  7. TOPIRAMATE [Concomitant]
  8. ETHANOL [Concomitant]

REACTIONS (3)
  - COMPLETED SUICIDE [None]
  - DRUG INEFFECTIVE [None]
  - GUN SHOT WOUND [None]
